FAERS Safety Report 18478195 (Version 1)
Quarter: 2020Q4

REPORT INFORMATION
  Report Type: Spontaneous
  Country: US (occurrence: US)
  Receive Date: 20201108
  Receipt Date: 20201108
  Transmission Date: 20210114
  Serious: No
  Sender: FDA-Public Use
  Company Number: US-009507513-2010USA009492

PATIENT
  Age: 21 Year
  Sex: Female
  Weight: 162.84 kg

DRUGS (1)
  1. NEXPLANON [Suspect]
     Active Substance: ETONOGESTREL
     Indication: CONTRACEPTION
     Dosage: 1 IMPLANT. ONE TIME INSERTION
     Route: 059
     Dates: start: 20201005

REACTIONS (1)
  - Complication of device insertion [Unknown]

NARRATIVE: CASE EVENT DATE: 20201005
